FAERS Safety Report 7631736-7 (Version None)
Quarter: 2011Q3

REPORT INFORMATION
  Report Type: 
  Country: None (occurrence: None)
  Receive Date: 20110725
  Receipt Date: 20110224
  Transmission Date: 20111222
  Serious: No
  Sender: FDA-Public Use
  Company Number: US-BRISTOL-MYERS SQUIBB COMPANY-15567787

PATIENT
  Age: 70 Year
  Sex: Male
  Weight: 61 kg

DRUGS (12)
  1. TEMAZEPAM [Concomitant]
  2. LOVENOX [Suspect]
     Dosage: STARTED ON 12-15FEB11,CONTINUED FROM 17-18FEB11
     Dates: start: 20110212
  3. WELLBUTRIN [Concomitant]
     Dosage: TABS
  4. PULMICORT [Concomitant]
     Dosage: 1DF=2 PUFFS
  5. VENTOLIN HFA [Concomitant]
     Route: 055
  6. COUMADIN [Suspect]
     Indication: TRANSIENT ISCHAEMIC ATTACK
     Dosage: 1DF=1.25MG ON TUE/FRIDAYS,2.5MG QD ON OTHER OF WK,STAT 5YRS AGO,INTER ON 12-15FEB11,RESTAT 17FEB11
  7. SINGULAIR [Concomitant]
     Dosage: TABS
  8. VITAMIN A [Concomitant]
  9. MECLIZINE [Concomitant]
     Indication: DIZZINESS
     Dosage: AT NIGHT
  10. SEREVENT [Concomitant]
     Dosage: 1DF=2 PUFFS
  11. AMIODARONE HCL [Concomitant]
     Dosage: TABS
  12. PREDNISONE [Concomitant]

REACTIONS (6)
  - CONTUSION [None]
  - INTERNATIONAL NORMALISED RATIO FLUCTUATION [None]
  - DIZZINESS [None]
  - HAEMATOMA [None]
  - ARTHRALGIA [None]
  - OEDEMA PERIPHERAL [None]
